FAERS Safety Report 9169474 (Version 1)
Quarter: 2013Q1

REPORT INFORMATION
  Report Type: Spontaneous
  Country: IT (occurrence: IT)
  Receive Date: 20130318
  Receipt Date: 20130318
  Transmission Date: 20140127
  Serious: Yes (Other)
  Sender: FDA-Public Use
  Company Number: IT-TEVA-391836ISR

PATIENT
  Age: 61 Year
  Sex: Female

DRUGS (1)
  1. OXALIPLATINO [Suspect]
     Indication: RECTAL CANCER
     Dosage: 160 MILLIGRAM DAILY;
     Route: 042
     Dates: start: 20130205, end: 20130205

REACTIONS (6)
  - Laryngospasm [Recovering/Resolving]
  - Pruritus [Recovering/Resolving]
  - Retching [Recovering/Resolving]
  - Erythema [Recovering/Resolving]
  - Paraesthesia [Recovering/Resolving]
  - Nausea [Recovering/Resolving]
